FAERS Safety Report 8012273-7 (Version None)
Quarter: 2011Q4

REPORT INFORMATION
  Report Type: 
  Country: None (occurrence: None)
  Receive Date: 20111228
  Receipt Date: 20111221
  Transmission Date: 20120403
  Serious: Yes (Hospitalization)
  Sender: FDA-Public Use
  Company Number: US-ELI_LILLY_AND_COMPANY-US201111003982

PATIENT
  Sex: Female
  Weight: 110 kg

DRUGS (12)
  1. PERCOCET [Concomitant]
     Indication: PAIN
     Dosage: 10 MG, PRN, Q6H
  2. M.V.I. [Concomitant]
  3. EFFEXOR [Concomitant]
  4. DEXAMETHASONE [Concomitant]
  5. GEMZAR [Suspect]
     Indication: BREAST CANCER RECURRENT
     Dosage: 2000 MG, OTHER
     Route: 042
     Dates: start: 20111017
  6. TAXOTERE [Concomitant]
     Dosage: 150 MG, OTHER
     Dates: start: 20111109
  7. FLONASE [Concomitant]
  8. COMPAZINE [Concomitant]
  9. GEMZAR [Suspect]
     Dosage: 1500 MG, OTHER
     Route: 042
     Dates: start: 20111109
  10. TAXOTERE [Concomitant]
     Indication: BREAST CANCER RECURRENT
     Dosage: 220 MG, OTHER
     Dates: start: 20111017
  11. ZOCOR [Concomitant]
  12. NEXIUM [Concomitant]

REACTIONS (5)
  - NEUTROPENIA [None]
  - WEIGHT DECREASED [None]
  - APHAGIA [None]
  - PYREXIA [None]
  - ORAL PAIN [None]
